FAERS Safety Report 25804124 (Version 2)
Quarter: 2025Q4

REPORT INFORMATION
  Report Type: Spontaneous
  Country: JP (occurrence: JP)
  Receive Date: 20250915
  Receipt Date: 20251029
  Transmission Date: 20260117
  Serious: Yes (Other)
  Sender: AMGEN
  Company Number: JP-AMGEN-JPNSP2025180023

PATIENT

DRUGS (1)
  1. BEVACIZUMAB [Suspect]
     Active Substance: BEVACIZUMAB
     Indication: Neoplasm malignant
     Dosage: UNK (INTRAVENOUS DRIP INFUSION)
     Route: 040

REACTIONS (6)
  - Embolism [Unknown]
  - Acute coronary syndrome [Unknown]
  - Cardiac failure [Unknown]
  - Arrhythmia [Unknown]
  - Cardiac dysfunction [Unknown]
  - Hypertension [Unknown]
